FAERS Safety Report 6438512-1 (Version None)
Quarter: 2009Q4

REPORT INFORMATION
  Report Type: 
  Country: None (occurrence: None)
  Receive Date: 20091110
  Receipt Date: 20091022
  Transmission Date: 20100525
  Serious: Yes (Life-Threatening)
  Sender: FDA-Public Use
  Company Number: PI-04321

PATIENT
  Age: 64 Year
  Sex: Male
  Weight: 73 kg

DRUGS (1)
  1. CHLORAPREP ONE-STEP FREPP [Suspect]
     Indication: PREOPERATIVE CARE
     Dosage: 3X/WK; TOPICAL
     Route: 061

REACTIONS (3)
  - ARTERIOVENOUS FISTULA SITE INFECTION [None]
  - DERMATITIS CONTACT [None]
  - SEPSIS [None]
